FAERS Safety Report 18557681 (Version 1)
Quarter: 2020Q4

REPORT INFORMATION
  Report Type: Spontaneous
  Country: FR (occurrence: FR)
  Receive Date: 20201130
  Receipt Date: 20201130
  Transmission Date: 20210114
  Serious: Yes (Other)
  Sender: FDA-Public Use
  Company Number: FR-HRAPH01-202000894

PATIENT
  Age: 52 Year
  Sex: Female
  Weight: 104 kg

DRUGS (6)
  1. CYMBALTA [Concomitant]
     Active Substance: DULOXETINE HYDROCHLORIDE
     Indication: PRODUCT USED FOR UNKNOWN INDICATION
  2. METOPIRONE [Suspect]
     Active Substance: METYRAPONE
     Indication: PITUITARY-DEPENDENT CUSHING^S SYNDROME
     Dosage: 2 TABLETS THREE TIMES DAILY
     Route: 048
     Dates: start: 20160706, end: 201610
  3. LEVOTHYROX [Concomitant]
     Active Substance: LEVOTHYROXINE
     Indication: PRODUCT USED FOR UNKNOWN INDICATION
  4. IMODIUM [Concomitant]
     Active Substance: LOPERAMIDE HYDROCHLORIDE
     Indication: PRODUCT USED FOR UNKNOWN INDICATION
  5. LYSODREN [Concomitant]
     Active Substance: MITOTANE
     Indication: PRODUCT USED FOR UNKNOWN INDICATION
  6. ALDACTONE [Concomitant]
     Active Substance: SPIRONOLACTONE
     Indication: PRODUCT USED FOR UNKNOWN INDICATION

REACTIONS (2)
  - Muscular weakness [Recovered/Resolved]
  - Malaise [Recovered/Resolved]

NARRATIVE: CASE EVENT DATE: 20161024
